FAERS Safety Report 10760809 (Version 2)
Quarter: 2015Q1

REPORT INFORMATION
  Report Type: Spontaneous
  Country: IT (occurrence: None)
  Receive Date: 20150202
  Receipt Date: 20150212
  Transmission Date: 20150721
  Serious: Yes (Other)
  Sender: FDA-Public Use
  Company Number: IT2015GSK010413

PATIENT
  Age: 71 Year
  Sex: Female

DRUGS (3)
  1. NORVIR (RITONAVIR) CAPSULE, SOFT [Concomitant]
  2. LAMIVUDINE (LAMIVUDINE) UNKNOWN [Suspect]
     Active Substance: LAMIVUDINE
     Indication: ACUTE HIV INFECTION
     Route: 048
     Dates: start: 20141030, end: 20141111
  3. TELZIR (FOSAMPRENAVIR) TABLET [Concomitant]

REACTIONS (1)
  - Asthmatic crisis [None]

NARRATIVE: CASE EVENT DATE: 20141110
